FAERS Safety Report 8478344-6 (Version None)
Quarter: 2012Q2

REPORT INFORMATION
  Report Type: 
  Country: None (occurrence: None)
  Receive Date: 20120629
  Receipt Date: 20120620
  Transmission Date: 20120825
  Serious: Yes (Death, Hospitalization)
  Sender: FDA-Public Use
  Company Number: JP-SANOFI-AVENTIS-2012SA039309

PATIENT
  Age: 59 Year
  Sex: Male
  Weight: 60 kg

DRUGS (5)
  1. PIOGLITAZONE HYDROCHLORIDE [Concomitant]
     Indication: DIABETES MELLITUS
     Dosage: STARTED AROUND FEB 2012
     Route: 065
     Dates: start: 20120201, end: 20120405
  2. AMARYL [Suspect]
     Indication: DIABETES MELLITUS
     Dosage: STRENGTH: 3 MG; FREQUENCY: 1.5 MG MORNING
     Route: 048
     Dates: start: 20120404, end: 20120507
  3. LOPERAMIDE HYDROCHLORIDE [Concomitant]
     Dosage: FREQUENCY: MORNING AND EVENING
     Route: 048
     Dates: start: 20120425
  4. ZANTAC [Concomitant]
     Indication: DUODENAL ULCER
     Dosage: FREQUENCY: MORNING AND EVENING
     Route: 048
     Dates: start: 20120404
  5. SITAGLIPTIN PHOSPHATE [Suspect]
     Indication: DIABETES MELLITUS
     Route: 048
     Dates: start: 20120404, end: 20120507

REACTIONS (4)
  - HYPOGLYCAEMIA [None]
  - DEPRESSED LEVEL OF CONSCIOUSNESS [None]
  - COLD SWEAT [None]
  - DEATH [None]
